FAERS Safety Report 5015677-X (Version None)
Quarter: 2006Q2

REPORT INFORMATION
  Report Type: 
  Country: None (occurrence: None)
  Receive Date: 20060601
  Receipt Date: 20060525
  Transmission Date: 20061013
  Serious: Yes (Other)
  Sender: FDA-Public Use
  Company Number: L0601963

PATIENT
  Age: 73 Year
  Sex: Male

DRUGS (6)
  1. DIGOXIN [Suspect]
     Dosage: 125MCG PER DAY
     Route: 065
  2. SPIRONOLACTONE [Suspect]
     Dosage: 25MG PER DAY
     Route: 065
  3. LISINOPRIL [Suspect]
     Dosage: 5MG PER DAY
     Route: 065
  4. FUROSEMIDE [Suspect]
     Dosage: 80MG PER DAY
     Route: 065
  5. SIMVASTATIN [Suspect]
     Dosage: 20MG PER DAY
     Route: 065
  6. WARFARIN [Suspect]
     Route: 065

REACTIONS (4)
  - ABASIA [None]
  - CARDIAC FAILURE [None]
  - OEDEMA PERIPHERAL [None]
  - RALES [None]
